FAERS Safety Report 5625029-7 (Version None)
Quarter: 2008Q1

REPORT INFORMATION
  Report Type: 
  Country: None (occurrence: None)
  Receive Date: 20080213
  Receipt Date: 20080204
  Transmission Date: 20080703
  Serious: Yes (Hospitalization)
  Sender: FDA-Public Use
  Company Number: ES-ABBOTT-08P-144-0434691-01

PATIENT
  Sex: Female

DRUGS (9)
  1. HUMIRA [Suspect]
     Indication: RHEUMATOID ARTHRITIS
     Route: 058
     Dates: start: 20050322, end: 20070907
  2. HUMIRA [Suspect]
     Dates: start: 20070907
  3. OMEPRAZOLE [Concomitant]
     Indication: PROPHYLAXIS AGAINST GASTROINTESTINAL ULCER
     Dates: start: 20010101
  4. METHOTREXATE [Concomitant]
     Indication: RHEUMATOID ARTHRITIS
     Dates: start: 20061201
  5. CALCIUM FOLINATE [Concomitant]
     Indication: VITAMIN SUPPLEMENTATION
     Dates: start: 20021101
  6. METHYLPREDNISOLONE [Concomitant]
     Indication: RHEUMATOID ARTHRITIS
     Dates: start: 20000201
  7. INDOMETHACIN [Concomitant]
     Indication: RHEUMATOID ARTHRITIS
     Dates: start: 20000201
  8. IRON SUCCINYL-PROTEIN COMPLEX [Concomitant]
     Indication: ANAEMIA
     Dates: start: 20061101
  9. COMMERCIAL HUMIRA [Concomitant]
     Indication: RHEUMATOID ARTHRITIS
     Dates: start: 20040405

REACTIONS (1)
  - CROHN'S DISEASE [None]
